FAERS Safety Report 9285331 (Version 2)
Quarter: 2013Q2

REPORT INFORMATION
  Report Type: Spontaneous
  Country: FR (occurrence: FR)
  Receive Date: 20130513
  Receipt Date: 20130613
  Transmission Date: 20140414
  Serious: Yes (Life-Threatening, Hospitalization)
  Sender: FDA-Public Use
  Company Number: FR-BRISTOL-MYERS SQUIBB COMPANY-18866590

PATIENT
  Age: 45 Year
  Sex: Male
  Weight: 80 kg

DRUGS (1)
  1. REYATAZ CAPS [Suspect]
     Indication: HIV INFECTION

REACTIONS (3)
  - Respiratory disorder [Unknown]
  - Loss of consciousness [Unknown]
  - Postrenal failure [Unknown]
